FAERS Safety Report 25640153 (Version 2)
Quarter: 2025Q3

REPORT INFORMATION
  Report Type: Spontaneous
  Country: AR (occurrence: AR)
  Receive Date: 20250804
  Receipt Date: 20250808
  Transmission Date: 20251020
  Serious: Yes (Life-Threatening)
  Sender: SANDOZ
  Company Number: AR-002147023-NVSC2025AR121930

PATIENT
  Sex: Female

DRUGS (2)
  1. FULVESTRANT [Suspect]
     Active Substance: FULVESTRANT
     Indication: Breast cancer metastatic
     Route: 065
     Dates: start: 20240619
  2. KISQALI [Suspect]
     Active Substance: RIBOCICLIB SUCCINATE
     Indication: Breast cancer metastatic
     Dosage: 600 MG, QD (ONCE DAILY), STOPPED APP 2 MONTHS AGO
     Route: 048
     Dates: start: 20240619

REACTIONS (2)
  - Terminal state [Recovering/Resolving]
  - Limb discomfort [Not Recovered/Not Resolved]
